FAERS Safety Report 4548181-3 (Version None)
Quarter: 2005Q1

REPORT INFORMATION
  Report Type: 
  Country: None (occurrence: None)
  Receive Date: 20050105
  Receipt Date: 20050105
  Transmission Date: 20050727
  Serious: Yes (Other)
  Sender: FDA-Public Use
  Company Number: None

PATIENT
  Sex: Female

DRUGS (2)
  1. NEURONTIN [Suspect]
     Indication: NEURALGIA
     Dosage: 1800 MG PO DAILY
     Route: 048
  2. CARISOPRODOL [Suspect]
     Indication: MUSCLE SPASMS
     Dosage: 350 MG PO HS
     Route: 048

REACTIONS (2)
  - BLADDER SPASM [None]
  - MICTURITION DISORDER [None]
